FAERS Safety Report 8536792-X (Version None)
Quarter: 2012Q2

REPORT INFORMATION
  Report Type: 
  Country: None (occurrence: None)
  Receive Date: 20120412
  Receipt Date: 20100315
  Transmission Date: 20120825
  Serious: Yes (Other)
  Sender: FDA-Public Use
  Company Number: PHEH2010US03265

PATIENT
  Age: 58 Year
  Sex: Male

DRUGS (2)
  1. AREDIA [Suspect]
     Indication: METASTASES TO BONE
     Dosage: MONTHLY IV, EVERY 3 MONTHS
     Route: 042
     Dates: start: 19970605, end: 20030101
  2. AREDIA [Suspect]
     Indication: METASTASES TO BONE
     Dosage: MONTHLY IV, EVERY 3 MONTHS
     Route: 042
     Dates: start: 20050101, end: 20060501

REACTIONS (2)
  - METASTASES TO BONE [None]
  - GASTROINTESTINAL HAEMORRHAGE [None]
